FAERS Safety Report 11966990 (Version 2)
Quarter: 2016Q1

REPORT INFORMATION
  Report Type: Spontaneous
  Country: US (occurrence: US)
  Receive Date: 20160127
  Receipt Date: 20160311
  Transmission Date: 20160526
  Serious: Yes (Other)
  Sender: FDA-Public Use
  Company Number: US-JNJFOC-20160114642

PATIENT
  Sex: Female
  Weight: 63.05 kg

DRUGS (10)
  1. LISINOPRIL. [Concomitant]
     Active Substance: LISINOPRIL
     Indication: HYPERTENSION
     Dosage: MORNING
     Route: 048
  2. TOCOPHEROL [Concomitant]
     Active Substance: TOCOPHEROL
     Indication: CARDIAC DISORDER
     Route: 048
     Dates: start: 2015
  3. LUTEINE [Concomitant]
     Indication: MACULAR DEGENERATION
     Route: 048
  4. OMEGA 9 FATTY ACIDS W/OMEGA-3 FATTY ACIDS/OME [Concomitant]
     Indication: CARDIAC DISORDER
     Dosage: STRENGTH- 60MG
     Route: 048
     Dates: start: 2015
  5. FERROUS GLUCONATE [Concomitant]
     Active Substance: FERROUS GLUCONATE
     Dosage: WITH FOOD
     Route: 048
     Dates: start: 2015
  6. XARELTO [Suspect]
     Active Substance: RIVAROXABAN
     Indication: ATRIAL FIBRILLATION
     Route: 048
     Dates: start: 2015
  7. XARELTO [Suspect]
     Active Substance: RIVAROXABAN
     Indication: CEREBROVASCULAR ACCIDENT PROPHYLAXIS
     Route: 048
     Dates: start: 2015
  8. CARTIA XT [Concomitant]
     Active Substance: DILTIAZEM HYDROCHLORIDE
     Indication: HYPERTENSION
     Route: 048
  9. ASCORBIC ACID. [Concomitant]
     Active Substance: ASCORBIC ACID
     Dosage: IT WAS WORKS WITH IRON
     Route: 048
     Dates: start: 2015
  10. DHA [Concomitant]
     Active Substance: DIETARY SUPPLEMENT
     Indication: MACULAR DEGENERATION
     Route: 048

REACTIONS (11)
  - Procedural haemorrhage [Recovered/Resolved]
  - Inappropriate schedule of drug administration [Unknown]
  - Product packaging issue [Unknown]
  - Arthritis [Not Recovered/Not Resolved]
  - Contusion [Not Recovered/Not Resolved]
  - Impaired healing [Not Recovered/Not Resolved]
  - Tooth injury [Unknown]
  - Onychomalacia [Not Recovered/Not Resolved]
  - Off label use [Unknown]
  - Alopecia [Not Recovered/Not Resolved]
  - Arthralgia [Not Recovered/Not Resolved]

NARRATIVE: CASE EVENT DATE: 2015
